FAERS Safety Report 24362640 (Version 1)
Quarter: 2024Q3

REPORT INFORMATION
  Report Type: Spontaneous
  Country: JP (occurrence: JP)
  Receive Date: 20240925
  Receipt Date: 20240925
  Transmission Date: 20241017
  Serious: Yes (Other)
  Sender: EISAI
  Company Number: JP-Eisai-202407608_HAL-STS_P_1

PATIENT
  Age: 82 Year
  Sex: Female

DRUGS (1)
  1. HALAVEN [Suspect]
     Active Substance: ERIBULIN MESYLATE
     Indication: Angiosarcoma
     Dosage: DOSE UNKNOWN
     Route: 042

REACTIONS (1)
  - Interstitial lung disease [Unknown]
